FAERS Safety Report 8172945 (Version 3)
Quarter: 2015Q1

REPORT INFORMATION
  Report Type: Spontaneous
  Country: NL (occurrence: NL)
  Receive Date: 20111007
  Receipt Date: 20150107
  Transmission Date: 20150721
  Serious: Yes (Hospitalization)
  Sender: FDA-Public Use
  Company Number: PHHY2011NL87321

PATIENT
  Age: 40 Year
  Sex: Male

DRUGS (1)
  1. CLOZAPINE. [Suspect]
     Active Substance: CLOZAPINE
     Indication: SCHIZOPHRENIA
     Route: 065

REACTIONS (20)
  - Urine electrolytes increased [Recovered/Resolved]
  - C-reactive protein increased [Recovered/Resolved]
  - Urinary tract infection [Recovered/Resolved]
  - Body temperature increased [Recovered/Resolved]
  - Eosinophilic colitis [Recovered/Resolved]
  - Mucosal dryness [Recovered/Resolved]
  - Hyperhidrosis [Recovered/Resolved]
  - White blood cell count increased [Recovered/Resolved]
  - Heart rate increased [Recovered/Resolved]
  - Lymphocyte morphology abnormal [Recovered/Resolved]
  - Eosinophilia [Recovered/Resolved]
  - Tachycardia [Recovered/Resolved]
  - Weight decreased [Recovered/Resolved]
  - Nitrite urine present [Recovered/Resolved]
  - Blood creatinine increased [Recovered/Resolved]
  - Blood urea increased [Recovered/Resolved]
  - Diarrhoea [Recovered/Resolved]
  - Dehydration [Recovered/Resolved]
  - Skin turgor decreased [Recovered/Resolved]
  - Dizziness [Recovered/Resolved]
